FAERS Safety Report 23577930 (Version 3)
Quarter: 2024Q2

REPORT INFORMATION
  Report Type: Spontaneous
  Country: US (occurrence: US)
  Receive Date: 20240228
  Receipt Date: 20240513
  Transmission Date: 20240716
  Serious: No
  Sender: FDA-Public Use
  Company Number: US-TAKEDA-2024TUS018543

PATIENT
  Sex: Female

DRUGS (1)
  1. VYVANSE [Suspect]
     Active Substance: LISDEXAMFETAMINE DIMESYLATE
     Indication: Product used for unknown indication
     Dosage: UNK
     Route: 065

REACTIONS (6)
  - Attention deficit hyperactivity disorder [Unknown]
  - Disease recurrence [Unknown]
  - Product packaging quantity issue [Unknown]
  - Product formulation issue [Unknown]
  - Product substitution issue [Unknown]
  - Off label use [Unknown]
